FAERS Safety Report 6702729-9 (Version None)
Quarter: 2010Q2

REPORT INFORMATION
  Report Type: 
  Country: None (occurrence: None)
  Receive Date: 20100429
  Receipt Date: 20100419
  Transmission Date: 20101027
  Serious: Yes (Other)
  Sender: FDA-Public Use
  Company Number: CH-CEPHALON-2010002308

PATIENT
  Age: 25 Year
  Sex: Male

DRUGS (3)
  1. MODASOMIL [Suspect]
     Indication: NARCOLEPSY
     Route: 048
  2. MODASOMIL [Suspect]
     Indication: CATAPLEXY
  3. SODIUM OXYBATE [Suspect]

REACTIONS (4)
  - DEPRESSED MOOD [None]
  - DRUG INEFFECTIVE [None]
  - IRRITABILITY [None]
  - SUICIDAL IDEATION [None]
